FAERS Safety Report 8501806-X (Version None)
Quarter: 2012Q3

REPORT INFORMATION
  Report Type: 
  Country: None (occurrence: None)
  Receive Date: 20120705
  Receipt Date: 20120705
  Transmission Date: 20120928
  Serious: Yes (Other)
  Sender: FDA-Public Use
  Company Number: None

PATIENT
  Sex: Female

DRUGS (4)
  1. CRESTOR [Concomitant]
  2. ATELVIA	 35 MG WARNER CHILCOTT [Suspect]
     Indication: BONE DENSITOMETRY
     Dosage: 35MG ONCE A WEEK PO
     Route: 048
  3. THYROID TAB [Concomitant]
  4. LIVALO [Concomitant]

REACTIONS (6)
  - ABDOMINAL PAIN UPPER [None]
  - ARTHRALGIA [None]
  - BACK PAIN [None]
  - MYALGIA [None]
  - DIARRHOEA [None]
  - MOVEMENT DISORDER [None]
